FAERS Safety Report 8124977-6 (Version None)
Quarter: 2012Q1

REPORT INFORMATION
  Report Type: 
  Country: None (occurrence: None)
  Receive Date: 20120209
  Receipt Date: 20120131
  Transmission Date: 20120608
  Serious: No
  Sender: FDA-Public Use
  Company Number: BR-ROCHE-1035713

PATIENT
  Sex: Female

DRUGS (2)
  1. DIANE-35 [Concomitant]
     Indication: CONTRACEPTION
     Route: 048
  2. ISOTRETINOIN [Suspect]
     Indication: PRODUCT USED FOR UNKNOWN INDICATION

REACTIONS (1)
  - PREGNANCY [None]
